FAERS Safety Report 22754562 (Version 3)
Quarter: 2025Q2

REPORT INFORMATION
  Report Type: Report from Study
  Country: BR (occurrence: BR)
  Receive Date: 20230727
  Receipt Date: 20250514
  Transmission Date: 20250717
  Serious: Yes (Hospitalization, Other)
  Sender: BIOGEN
  Company Number: BR-BIOGEN-2023BI01218180

PATIENT
  Age: 0 Year
  Sex: Female
  Weight: 18.5 kg

DRUGS (4)
  1. SPINRAZA [Suspect]
     Active Substance: NUSINERSEN
     Indication: Spinal muscular atrophy
     Dosage: 1 AMPOULE OF 5ML
     Route: 050
     Dates: start: 20191212
  2. DOMPERIDONE [Concomitant]
     Active Substance: DOMPERIDONE
     Indication: Gastrooesophageal reflux disease
     Route: 050
  3. Neutrofer (iron chelate glycinate) [Concomitant]
     Indication: Product used for unknown indication
     Route: 050
  4. LOSEC [Concomitant]
     Active Substance: OMEPRAZOLE
     Indication: Product used for unknown indication
     Route: 050

REACTIONS (5)
  - Autism spectrum disorder [Not Recovered/Not Resolved]
  - Pneumonia [Recovered/Resolved]
  - Infection [Recovered/Resolved]
  - Dysbiosis [Unknown]
  - Secretion discharge [Unknown]

NARRATIVE: CASE EVENT DATE: 20200101
